FAERS Safety Report 6699858-5 (Version None)
Quarter: 2010Q2

REPORT INFORMATION
  Report Type: 
  Country: None (occurrence: None)
  Receive Date: 20100427
  Receipt Date: 20100427
  Transmission Date: 20101027
  Serious: Yes (Hospitalization)
  Sender: FDA-Public Use
  Company Number: None

PATIENT
  Age: 58 Year
  Sex: Male
  Weight: 103 kg

DRUGS (2)
  1. WARFARIN SODIUM [Suspect]
     Indication: VASCULAR OPERATION
     Dates: start: 20100410
  2. ENOXAPARIN SODIUM [Suspect]
     Indication: VASCULAR OPERATION
     Dates: start: 20100410

REACTIONS (3)
  - DRUG LEVEL ABOVE THERAPEUTIC [None]
  - HAEMATOMA [None]
  - INCISION SITE HAEMORRHAGE [None]
